FAERS Safety Report 11345406 (Version 2)
Quarter: 2015Q3

REPORT INFORMATION
  Report Type: Report from Study
  Country: BR (occurrence: BR)
  Receive Date: 20150806
  Receipt Date: 20150820
  Transmission Date: 20151125
  Serious: Yes (Hospitalization, Other)
  Sender: FDA-Public Use
  Company Number: PHHY2013BR009770

PATIENT
  Age: 44 Year
  Sex: Male
  Weight: 60 kg

DRUGS (2)
  1. EXJADE [Suspect]
     Active Substance: DEFERASIROX
     Indication: IRON OVERLOAD
     Dosage: 1250 MG (TWO TABLETS OF 500 MG AND ONE TABLET OF 250 MG)
     Route: 048
  2. EXJADE [Suspect]
     Active Substance: DEFERASIROX
     Indication: MYELODYSPLASTIC SYNDROME
     Dosage: 750 MG
     Route: 048

REACTIONS (8)
  - Serum ferritin increased [Recovering/Resolving]
  - Weight increased [Not Recovered/Not Resolved]
  - Brain neoplasm [Unknown]
  - Dizziness [Unknown]
  - Decreased appetite [Unknown]
  - Cerebrovascular accident [Recovering/Resolving]
  - Weight decreased [Recovered/Resolved]
  - Drug intolerance [Unknown]

NARRATIVE: CASE EVENT DATE: 201409
